FAERS Safety Report 9399531 (Version 2)
Quarter: 2013Q3

REPORT INFORMATION
  Report Type: Spontaneous
  Country: US (occurrence: None)
  Receive Date: 20130710
  Receipt Date: 20130718
  Transmission Date: 20140515
  Serious: Yes (Other)
  Sender: FDA-Public Use
  Company Number: AUR-APL-2013-05775

PATIENT
  Age: 80 Year
  Sex: Female
  Weight: 66 kg

DRUGS (7)
  1. PANTOPRAZOLE (PANTOPRAZOLE) [Suspect]
     Indication: PRODUCT USED FOR UNKNOWN INDICATION
  2. METOPROLOL (METOPROLOL) [Concomitant]
  3. ASPIRIN (ACETYLSAL-ICYLIC ACID) [Concomitant]
  4. CALCIUM (CALCIUM) [Concomitant]
  5. FISH OIL (FISH OIL) [Concomitant]
  6. BENAZEPRIL (BENAZEPRIL) [Concomitant]
  7. PRAVASTATIN (PRAVASTATIN) [Concomitant]

REACTIONS (5)
  - Gastritis [None]
  - Arthralgia [None]
  - Intracardiac thrombus [None]
  - Arteritis [None]
  - Gallbladder disorder [None]
